FAERS Safety Report 18587890 (Version 3)
Quarter: 2021Q3

REPORT INFORMATION
  Report Type: Report from Study
  Country: DE (occurrence: DE)
  Receive Date: 20201207
  Receipt Date: 20210811
  Transmission Date: 20211014
  Serious: Yes (Hospitalization, Other)
  Sender: FDA-Public Use
  Company Number: DE-SHIRE-DE202017211

PATIENT
  Age: 73 Year
  Sex: Male
  Weight: 105 kg

DRUGS (25)
  1. TEDUGLUTIDE [Suspect]
     Active Substance: TEDUGLUTIDE
     Indication: SHORT-BOWEL SYNDROME
     Dosage: 2 MILLIGRAM
     Route: 065
     Dates: start: 20160114, end: 20160522
  2. TEDUGLUTIDE [Suspect]
     Active Substance: TEDUGLUTIDE
     Dosage: 3.75 MILLIGRAM
     Route: 065
     Dates: start: 20160526, end: 201608
  3. TEDUGLUTIDE [Suspect]
     Active Substance: TEDUGLUTIDE
     Dosage: 5 MILLIGRAM
     Route: 065
     Dates: start: 201608, end: 201609
  4. FERINJECT [Concomitant]
     Active Substance: FERRIC CARBOXYMALTOSE
     Indication: PRODUCT USED FOR UNKNOWN INDICATION
     Dosage: UNK
     Route: 065
  5. TEDUGLUTIDE [Suspect]
     Active Substance: TEDUGLUTIDE
     Dosage: 3.75 MILLIGRAM
     Route: 065
     Dates: start: 20160526, end: 201608
  6. AZITHROMYCIN ANHYDROUS. [Concomitant]
     Active Substance: AZITHROMYCIN ANHYDROUS
     Indication: CAMPYLOBACTER GASTROENTERITIS
     Dosage: UNK
     Route: 065
     Dates: start: 20210123, end: 20210125
  7. SULTAMICILLIN [Concomitant]
     Active Substance: SULTAMICILLIN
     Indication: ANTIBIOTIC THERAPY
     Dosage: 375 MILLIGRAM, BID
     Route: 048
     Dates: start: 20200709, end: 20200711
  8. TEDUGLUTIDE [Suspect]
     Active Substance: TEDUGLUTIDE
     Dosage: 3.75 MILLIGRAM
     Route: 065
     Dates: start: 20160526, end: 201608
  9. TEDUGLUTIDE [Suspect]
     Active Substance: TEDUGLUTIDE
     Dosage: 5 MILLIGRAM
     Route: 065
     Dates: start: 201608, end: 201609
  10. TEDUGLUTIDE [Suspect]
     Active Substance: TEDUGLUTIDE
     Dosage: 2 MILLIGRAM
     Route: 065
     Dates: start: 201609
  11. TEDUGLUTIDE [Suspect]
     Active Substance: TEDUGLUTIDE
     Dosage: 2 MILLIGRAM
     Route: 065
     Dates: start: 201609
  12. SULTAMICILLIN [Concomitant]
     Active Substance: SULTAMICILLIN
     Dosage: 375 MILLIGRAM, BID
     Route: 048
     Dates: start: 20200710, end: 20200717
  13. TEDUGLUTIDE [Suspect]
     Active Substance: TEDUGLUTIDE
     Dosage: 3.75 MILLIGRAM
     Route: 065
     Dates: start: 20160526, end: 201608
  14. TEDUGLUTIDE [Suspect]
     Active Substance: TEDUGLUTIDE
     Dosage: 2 MILLIGRAM
     Route: 065
     Dates: start: 201609
  15. PREDNISONE. [Concomitant]
     Active Substance: PREDNISONE
     Indication: GOUT
     Route: 065
  16. JONOSTERIL [Concomitant]
     Indication: METABOLIC ACIDOSIS
     Dosage: UNK, 2?2 TIMES A WEEK
     Route: 042
     Dates: start: 20210123
  17. TEDUGLUTIDE [Suspect]
     Active Substance: TEDUGLUTIDE
     Indication: SHORT-BOWEL SYNDROME
     Dosage: 2 MILLIGRAM
     Route: 065
     Dates: start: 20160114, end: 20160522
  18. NOVAMINSULFON [Concomitant]
     Active Substance: METAMIZOLE
     Indication: PAIN
     Dosage: 500 MILLIGRAM, QID
     Route: 048
     Dates: start: 20210123
  19. TEDUGLUTIDE [Suspect]
     Active Substance: TEDUGLUTIDE
     Indication: SHORT-BOWEL SYNDROME
     Dosage: 2 MILLIGRAM
     Route: 065
     Dates: start: 20160114, end: 20160522
  20. TEDUGLUTIDE [Suspect]
     Active Substance: TEDUGLUTIDE
     Indication: SHORT-BOWEL SYNDROME
     Dosage: 2 MILLIGRAM
     Route: 065
     Dates: start: 20160114, end: 20160522
  21. TEDUGLUTIDE [Suspect]
     Active Substance: TEDUGLUTIDE
     Dosage: 2 MILLIGRAM
     Route: 065
     Dates: start: 201609
  22. NATRIUM [Concomitant]
     Indication: PRODUCT USED FOR UNKNOWN INDICATION
     Dosage: UNK
     Route: 065
  23. TEDUGLUTIDE [Suspect]
     Active Substance: TEDUGLUTIDE
     Dosage: 5 MILLIGRAM
     Route: 065
     Dates: start: 201608, end: 201609
  24. TEDUGLUTIDE [Suspect]
     Active Substance: TEDUGLUTIDE
     Dosage: 5 MILLIGRAM
     Route: 065
     Dates: start: 201608, end: 201609
  25. SULTAMICILLIN [Concomitant]
     Active Substance: SULTAMICILLIN
     Indication: ANTIBIOTIC THERAPY
     Dosage: 375 MILLIGRAM, BID
     Route: 048
     Dates: start: 20200709, end: 20200711

REACTIONS (3)
  - Nocturia [Not Recovered/Not Resolved]
  - Nephrolithiasis [Recovered/Resolved]
  - Gout [Recovered/Resolved with Sequelae]

NARRATIVE: CASE EVENT DATE: 20200501
